FAERS Safety Report 9224793 (Version 1)
Quarter: 2013Q2

REPORT INFORMATION
  Report Type: Spontaneous
  Country: ES (occurrence: ES)
  Receive Date: 20130411
  Receipt Date: 20130411
  Transmission Date: 20140414
  Serious: Yes (Hospitalization)
  Sender: FDA-Public Use
  Company Number: ES-UCBSA-082585

PATIENT
  Age: 70 Year
  Sex: Female

DRUGS (2)
  1. LEVETIRACETAM [Suspect]
     Indication: EPILEPSY
     Dosage: DOSE: 3.5 G/DAY
     Route: 058
  2. LEVETIRACETAM [Suspect]
     Indication: EPILEPSY
     Dosage: DOSE: 2 G/DAY
     Route: 058

REACTIONS (11)
  - Toxicity to various agents [Recovering/Resolving]
  - Convulsion [Recovered/Resolved]
  - Apraxia [Unknown]
  - Monoparesis [Unknown]
  - Aphasia [Unknown]
  - Dysphagia [Unknown]
  - Affect lability [Unknown]
  - Treatment noncompliance [Unknown]
  - Oedema [Unknown]
  - Phlebitis [Unknown]
  - Pain [Unknown]
